FAERS Safety Report 5409111-5 (Version None)
Quarter: 2007Q3

REPORT INFORMATION
  Report Type: 
  Country: None (occurrence: None)
  Receive Date: 20070806
  Receipt Date: 20070731
  Transmission Date: 20080115
  Serious: Yes (Life-Threatening, Hospitalization)
  Sender: FDA-Public Use
  Company Number: TPG2007A00523

PATIENT
  Age: 70 Year
  Sex: Female

DRUGS (4)
  1. PIOGLITAZONE HYDROCHLORIDE, METFORMIN HYDROCHLORIDE (CODE NOT BROKEN) [Suspect]
     Indication: DIABETES MELLITUS
     Dosage: PER ORAL
     Route: 048
     Dates: start: 20070501, end: 20070701
  2. TAMOXIFEN CITRATE [Concomitant]
  3. OPIPRAMOL (OPIPRAMOL) [Concomitant]
  4. SILYMARIN (SILYBUM MARIANUM) [Concomitant]

REACTIONS (12)
  - ALCOHOLISM [None]
  - ANURIA [None]
  - CARDIAC FAILURE [None]
  - CONFUSIONAL STATE [None]
  - DYSPNOEA [None]
  - HEPATIC CONGESTION [None]
  - HEPATIC FAILURE [None]
  - INTERNATIONAL NORMALISED RATIO INCREASED [None]
  - LACTIC ACIDOSIS [None]
  - OEDEMA PERIPHERAL [None]
  - PLEURAL EFFUSION [None]
  - RENAL FAILURE [None]
